FAERS Safety Report 23661859 (Version 4)
Quarter: 2024Q3

REPORT INFORMATION
  Report Type: Report from Study
  Country: JP (occurrence: JP)
  Receive Date: 20240322
  Receipt Date: 20240709
  Transmission Date: 20241017
  Serious: Yes (Death, Hospitalization)
  Sender: INSMED
  Company Number: JP-INSMED, INC.-2024-01056-JP

PATIENT
  Age: 79 Year
  Sex: Male

DRUGS (1)
  1. ARIKAYCE [Suspect]
     Active Substance: AMIKACIN
     Indication: Mycobacterium avium complex infection
     Dosage: UNK, UNK
     Route: 055
     Dates: start: 20230608

REACTIONS (3)
  - Death [Fatal]
  - Hospitalisation [Unknown]
  - Device breakage [Unknown]

NARRATIVE: CASE EVENT DATE: 20240413
